FAERS Safety Report 7058054-2 (Version None)
Quarter: 2010Q4

REPORT INFORMATION
  Report Type: 
  Country: None (occurrence: None)
  Receive Date: 20101021
  Receipt Date: 20101021
  Transmission Date: 20110411
  Serious: Yes (Life-Threatening, Hospitalization, Other)
  Sender: FDA-Public Use
  Company Number: None

PATIENT
  Age: 59 Year
  Sex: Male
  Weight: 99.7913 kg

DRUGS (2)
  1. HYALURONIDASE [Suspect]
     Indication: LOCAL ANAESTHESIA
     Dosage: 80 UNITS ONCE OPHTHALMIC
     Route: 047
     Dates: start: 20100730, end: 20100730
  2. 2% LIDOCAINE [Concomitant]

REACTIONS (2)
  - DRUG HYPERSENSITIVITY [None]
  - EYE SWELLING [None]
